FAERS Safety Report 7837305-8 (Version None)
Quarter: 2011Q4

REPORT INFORMATION
  Report Type: 
  Country: None (occurrence: None)
  Receive Date: 20111024
  Receipt Date: 20110913
  Transmission Date: 20120403
  Serious: No
  Sender: FDA-Public Use
  Company Number: US-ABBOTT-11P-163-0854790-00

PATIENT
  Sex: Female

DRUGS (2)
  1. UNKNOWN STATIN [Concomitant]
     Indication: BLOOD CHOLESTEROL
  2. LUPRON DEPOT [Suspect]
     Indication: ENDOMETRIOSIS
     Dates: start: 20110801

REACTIONS (4)
  - MUSCULAR WEAKNESS [None]
  - MYALGIA [None]
  - MUSCULOSKELETAL STIFFNESS [None]
  - PAIN IN EXTREMITY [None]
